FAERS Safety Report 20660616 (Version 2)
Quarter: 2022Q2

REPORT INFORMATION
  Report Type: Spontaneous
  Country: CO (occurrence: CO)
  Receive Date: 20220331
  Receipt Date: 20220420
  Transmission Date: 20220721
  Serious: Yes (Hospitalization, Other)
  Sender: FDA-Public Use
  Company Number: CO-BAYER-2022A046169

PATIENT
  Age: 86 Year
  Sex: Male
  Weight: 48 kg

DRUGS (45)
  1. ULTRAVIST [Suspect]
     Active Substance: IOPROMIDE
     Indication: Computerised tomogram thorax
     Dosage: 90 ML, ONCE (LEFT UPPER LIMB)
     Route: 042
     Dates: start: 20220309
  2. ULTRAVIST [Suspect]
     Active Substance: IOPROMIDE
     Indication: Pulmonary embolism
  3. METOPROLOL [Concomitant]
     Active Substance: METOPROLOL
  4. METOPROLOL [Concomitant]
     Active Substance: METOPROLOL
     Dosage: 50 MG
     Route: 048
     Dates: start: 20220308, end: 20220308
  5. METOPROLOL [Concomitant]
     Active Substance: METOPROLOL
     Dosage: 1 MG, ONCE
     Route: 042
     Dates: start: 20220309, end: 20220309
  6. METOPROLOL [Concomitant]
     Active Substance: METOPROLOL
     Dosage: 50 MG
     Route: 048
     Dates: start: 20220310, end: 20220311
  7. METOPROLOL [Concomitant]
     Active Substance: METOPROLOL
     Dosage: 50 MG
     Route: 048
     Dates: start: 20220313, end: 20220317
  8. AMIODARONE [Concomitant]
     Active Substance: AMIODARONE
     Dosage: 200 MG
     Route: 048
  9. SPIRONOLACTONE [Concomitant]
     Active Substance: SPIRONOLACTONE
  10. SPIRONOLACTONE [Concomitant]
     Active Substance: SPIRONOLACTONE
     Dosage: 12.5 MG
     Route: 048
     Dates: start: 20220311, end: 20220312
  11. SPIRONOLACTONE [Concomitant]
     Active Substance: SPIRONOLACTONE
     Dosage: 25 MG, ONCE
     Route: 048
     Dates: start: 20220312, end: 20220312
  12. SPIRONOLACTONE [Concomitant]
     Active Substance: SPIRONOLACTONE
     Dosage: 25 MG, ONCE
     Route: 048
     Dates: start: 20220313, end: 20220313
  13. SPIRONOLACTONE [Concomitant]
     Active Substance: SPIRONOLACTONE
     Dosage: 25 MG, QD
     Route: 048
  14. ENALAPRIL [Concomitant]
     Active Substance: ENALAPRIL
  15. VALSARTAN [Concomitant]
     Active Substance: VALSARTAN
  16. FUROSEMIDE [Concomitant]
     Active Substance: FUROSEMIDE
  17. FUROSEMIDE [Concomitant]
     Active Substance: FUROSEMIDE
     Dosage: 10 MG
     Route: 042
     Dates: start: 20220312, end: 20220313
  18. FUROSEMIDE [Concomitant]
     Active Substance: FUROSEMIDE
     Dosage: 40 MG
     Route: 048
  19. IPRATROPIUM BROMIDE [Concomitant]
     Active Substance: IPRATROPIUM BROMIDE
  20. IPRATROPIUM BROMIDE [Concomitant]
     Active Substance: IPRATROPIUM BROMIDE
     Dosage: 20 MCG/DO
     Route: 045
     Dates: start: 20220308, end: 20220317
  21. IPRATROPIUM BROMIDE [Concomitant]
     Active Substance: IPRATROPIUM BROMIDE
     Dosage: 3 PUFF(S) EVERY 8H
  22. ENOXAPARIN [Concomitant]
     Active Substance: ENOXAPARIN
  23. APIXABAN [Concomitant]
     Active Substance: APIXABAN
  24. LACTATED RINGERS SOLUTION [Concomitant]
     Active Substance: CALCIUM CHLORIDE\POTASSIUM CHLORIDE\SODIUM CHLORIDE\SODIUM LACTATE
     Dosage: 500 ML, 80
     Route: 042
     Dates: start: 20220308
  25. DIPYRONE [Concomitant]
     Active Substance: DIPYRONE
     Dosage: 1G/2ML AMP
     Route: 042
     Dates: start: 20220308, end: 20220309
  26. TRAMADOL [Concomitant]
     Active Substance: TRAMADOL
     Dosage: 50 MG/ 1 ML AMP
     Route: 042
     Dates: start: 20220308, end: 20220308
  27. UNSPECIFIED INGREDIENT [Concomitant]
     Active Substance: UNSPECIFIED INGREDIENT
     Dosage: 40 MG (40MG/0.4ML)
     Route: 030
     Dates: start: 20220308, end: 20220308
  28. UNSPECIFIED INGREDIENT [Concomitant]
     Active Substance: UNSPECIFIED INGREDIENT
     Dosage: 50 MG
     Route: 058
     Dates: start: 20220308, end: 20220308
  29. UNSPECIFIED INGREDIENT [Concomitant]
     Active Substance: UNSPECIFIED INGREDIENT
     Dosage: 40 MG
     Route: 058
     Dates: start: 20220312, end: 20220315
  30. METOCLOPRAMIDE [Concomitant]
     Active Substance: METOCLOPRAMIDE
     Dosage: 10MG/2ML AMP
     Route: 042
     Dates: start: 20220308
  31. DEXAMETHASONE [Concomitant]
     Active Substance: DEXAMETHASONE
     Dosage: AMP
     Route: 042
     Dates: start: 20220308, end: 20220309
  32. SODIUM CHLORIDE [Concomitant]
     Active Substance: SODIUM CHLORIDE
     Dosage: 1 CC
     Route: 042
     Dates: start: 20220309, end: 20220309
  33. NOREPINEPHRINE TARTRATE [Concomitant]
     Dosage: 1MG/ML AMP.
     Route: 042
     Dates: start: 20220309, end: 20220309
  34. ENALAPRIL MALEATE [Concomitant]
     Active Substance: ENALAPRIL MALEATE
     Dosage: 5 MG
     Route: 048
     Dates: start: 20220311, end: 20220312
  35. EMPAGLIFLOZIN [Concomitant]
     Active Substance: EMPAGLIFLOZIN
     Dosage: 10 MG
     Route: 048
  36. SACUBITRIL [Concomitant]
     Active Substance: SACUBITRIL
     Dosage: 50 MG
     Route: 048
     Dates: end: 20220315
  37. OXYGEN [Concomitant]
     Active Substance: OXYGEN
     Dosage: 2 L
     Route: 045
     Dates: start: 20220316, end: 20220323
  38. AMINOPHYLLINE [Concomitant]
     Active Substance: AMINOPHYLLINE
     Dosage: 1 CC
     Route: 042
     Dates: start: 20220318, end: 20220318
  39. DIPYRIDAMOLE [Concomitant]
     Active Substance: DIPYRIDAMOLE
     Dosage: 4CC
     Route: 042
     Dates: start: 20220318, end: 20220318
  40. SODIUM PERTECHNETATE 99MTC [Concomitant]
     Dosage: 4CC
     Route: 042
     Dates: start: 20220318, end: 20220318
  41. CARVEDILOL [Concomitant]
     Active Substance: CARVEDILOL
     Dosage: 6.25 MG
     Route: 048
     Dates: start: 20220320, end: 20220323
  42. DESLORATADINE [Concomitant]
     Active Substance: DESLORATADINE
  43. LEVOFLOXACIN [Concomitant]
     Active Substance: LEVOFLOXACIN
  44. BENZIRIN [Concomitant]
  45. NOREPINEPHRINE [Concomitant]
     Active Substance: NOREPINEPHRINE

REACTIONS (8)
  - Mouth haemorrhage [Recovering/Resolving]
  - Oedema mouth [Recovering/Resolving]
  - Contrast media reaction [None]
  - Atrial fibrillation [None]
  - Atrial flutter [None]
  - Dyspnoea [None]
  - Paraesthesia [None]
  - Mobility decreased [None]

NARRATIVE: CASE EVENT DATE: 20220309
